FAERS Safety Report 5810209-8 (Version None)
Quarter: 2008Q3

REPORT INFORMATION
  Report Type: 
  Country: None (occurrence: None)
  Receive Date: 20080715
  Receipt Date: 20071206
  Transmission Date: 20090109
  Serious: No
  Sender: FDA-Public Use
  Company Number: A0691316A

PATIENT

DRUGS (1)
  1. IMITREX [Suspect]
     Indication: MIGRAINE
     Dosage: 100MG SINGLE DOSE
     Route: 048

REACTIONS (6)
  - CHEST DISCOMFORT [None]
  - MALAISE [None]
  - MUSCULOSKELETAL DISCOMFORT [None]
  - NAUSEA [None]
  - PAIN [None]
  - PERFORMANCE STATUS DECREASED [None]
